FAERS Safety Report 15122251 (Version 2)
Quarter: 2018Q3

REPORT INFORMATION
  Report Type: Spontaneous
  Country: AT (occurrence: AT)
  Receive Date: 20180709
  Receipt Date: 20180726
  Transmission Date: 20181010
  Serious: Yes (Death, Hospitalization)
  Sender: FDA-Public Use
  Company Number: AT-NAPPMUNDI-GBR-2018-0057418

PATIENT
  Sex: Female

DRUGS (35)
  1. ACETAZOLAMIDE. [Suspect]
     Active Substance: ACETAZOLAMIDE
     Indication: PROPHYLAXIS
     Dosage: 50 MG, AM (ONCE IN THE MORNING)
     Route: 065
  2. ACETYLSALICYLIC ACID [Suspect]
     Active Substance: ASPIRIN
     Indication: CORONARY ARTERY DISEASE
     Dosage: 100 MG, AM (ONCE IN THE MORNING)
     Route: 065
  3. ALGELDRATE [Concomitant]
     Active Substance: ALGELDRATE
  4. BISOPROLOL [Suspect]
     Active Substance: BISOPROLOL
     Indication: CORONARY ARTERY DISEASE
     Dosage: 2.5 MG, (IN TWO DIVIDED DOSES, PNE IN THE MORNING AND ONE AT NIGHT)
     Route: 065
  5. RISPERIDONE. [Suspect]
     Active Substance: RISPERIDONE
     Indication: PSYCHOTIC DISORDER
     Dosage: 1 MG, NOCTE (HALF DOSE AT NIGHT)
     Route: 065
  6. THEOPHYLLINE [Concomitant]
     Active Substance: THEOPHYLLINE ANHYDROUS
  7. IPRATROPIUM [Concomitant]
     Active Substance: IPRATROPIUM
  8. VITAMIN D                          /00107901/ [Concomitant]
     Active Substance: ERGOCALCIFEROL
  9. HYDROMORPHONE HYDROCHLORIDE. [Suspect]
     Active Substance: HYDROMORPHONE HYDROCHLORIDE
     Indication: PAIN
     Dosage: 4 MG, AM (ONCE IN THE MORNING)
     Route: 065
  10. FLUTICASONE. [Concomitant]
     Active Substance: FLUTICASONE
  11. ACETYLCYSTEINE. [Concomitant]
     Active Substance: ACETYLCYSTEINE
  12. ATORVASTATIN [Concomitant]
     Active Substance: ATORVASTATIN
  13. IBANDRONIC ACID. [Concomitant]
     Active Substance: IBANDRONIC ACID
  14. DIPHENHYDRAMINE. [Concomitant]
     Active Substance: DIPHENHYDRAMINE
  15. MORPHINE HYDROCHLORIDE [Concomitant]
     Active Substance: MORPHINE HYDROCHLORIDE
  16. DULOXETINE. [Suspect]
     Active Substance: DULOXETINE
     Indication: DEPRESSION
     Dosage: 60 MG, AM (ONCE IN THE MORNING)
     Route: 065
  17. GABAPENTIN. [Suspect]
     Active Substance: GABAPENTIN
     Indication: PAIN
     Dosage: 600 MG, UNK
     Route: 065
  18. SERTRALINE [Suspect]
     Active Substance: SERTRALINE HYDROCHLORIDE
     Indication: PANIC ATTACK
     Dosage: 50 MG, AM (ONCE IN THE MORNING)
     Route: 065
  19. BENSERAZIDE [Suspect]
     Active Substance: BENSERAZIDE
     Indication: RESTLESS LEGS SYNDROME
     Dosage: 25 MG, NOCTE (ONCE AT NIGHT)
     Route: 065
  20. PREDNISONE. [Concomitant]
     Active Substance: PREDNISONE
  21. LEVOTHYROXINE. [Concomitant]
     Active Substance: LEVOTHYROXINE
  22. FUROSEMIDE. [Concomitant]
     Active Substance: FUROSEMIDE
  23. TRAMADOL HYDROCHLORIDE. [Suspect]
     Active Substance: TRAMADOL HYDROCHLORIDE
     Indication: PAIN
     Dosage: 200 MG, DAILY (ONCE AT NIGHT)
     Route: 065
  24. SALMETEROL [Concomitant]
     Active Substance: SALMETEROL
  25. DIOSMIN [Concomitant]
     Active Substance: DIOSMIN
  26. DICLOFENAC [Concomitant]
     Active Substance: DICLOFENAC
  27. PRAMIPEXOLE. [Suspect]
     Active Substance: PRAMIPEXOLE
     Indication: RESTLESS LEGS SYNDROME
     Dosage: 2.1 MG, AM (ONCE IN THE MORNING)
     Route: 065
  28. ALPRAZOLAM. [Suspect]
     Active Substance: ALPRAZOLAM
     Indication: DYSPNOEA
     Dosage: 0.5 MG, UNK
     Route: 065
  29. TIOTROPIUM [Concomitant]
     Active Substance: TIOTROPIUM
  30. FENOTEROL [Concomitant]
     Active Substance: FENOTEROL
  31. OMEPRAZOLE. [Concomitant]
     Active Substance: OMEPRAZOLE
  32. HESPERIDIN [Concomitant]
     Active Substance: HESPERIDIN
  33. CLOPIDOGREL [Suspect]
     Active Substance: CLOPIDOGREL BISULFATE
     Indication: CORONARY ARTERY DISEASE
     Dosage: 75 MG, AM (ONCE IN THE MORNING)
     Route: 065
  34. LEVODOPA [Suspect]
     Active Substance: LEVODOPA
     Indication: RESTLESS LEGS SYNDROME
     Dosage: 100 MG, NOCTE (ONCE AT NIGHT)
     Route: 065
  35. PIPERACILLIN/TAZOBACTAM [Concomitant]
     Active Substance: PIPERACILLIN SODIUM\TAZOBACTAM SODIUM

REACTIONS (3)
  - Death [Fatal]
  - Delirium [Unknown]
  - Off label use [Unknown]
